FAERS Safety Report 8004440-3 (Version None)
Quarter: 2011Q4

REPORT INFORMATION
  Report Type: 
  Country: None (occurrence: None)
  Receive Date: 20111221
  Receipt Date: 20111221
  Transmission Date: 20120403
  Serious: Yes (Other)
  Sender: FDA-Public Use
  Company Number: None

PATIENT
  Age: 79 Year
  Sex: Male
  Weight: 74.8435 kg

DRUGS (1)
  1. BACTRIM [Suspect]
     Indication: INFECTED CYST
     Dosage: 1 PILL 1 QD PO
     Route: 048
     Dates: start: 20111202, end: 20111203

REACTIONS (2)
  - PYREXIA [None]
  - CHILLS [None]
